FAERS Safety Report 8072623-2 (Version None)
Quarter: 2012Q1

REPORT INFORMATION
  Report Type: 
  Country: None (occurrence: None)
  Receive Date: 20120126
  Receipt Date: 20120117
  Transmission Date: 20120608
  Serious: Yes (Other)
  Sender: FDA-Public Use
  Company Number: US-PFIZER INC-2012017977

PATIENT
  Sex: Male
  Weight: 81.633 kg

DRUGS (5)
  1. POTASSIUM [Concomitant]
     Dosage: UNK
  2. COUMADIN [Suspect]
  3. LASIX [Concomitant]
     Dosage: UNK
  4. AVODART [Concomitant]
     Dosage: UNK
  5. REVATIO [Suspect]
     Indication: PULMONARY HYPERTENSION
     Dosage: 20 MG, 3X/DAY
     Route: 048
     Dates: start: 20080101

REACTIONS (2)
  - PNEUMONIA [None]
  - DRUG LEVEL CHANGED [None]
